FAERS Safety Report 12037808 (Version 1)
Quarter: 2016Q1

REPORT INFORMATION
  Report Type: Report from Study
  Country: US (occurrence: US)
  Receive Date: 20160208
  Receipt Date: 20160208
  Transmission Date: 20160526
  Serious: No
  Sender: FDA-Public Use
  Company Number: US-ABBVIE-15K-163-1528663-00

PATIENT
  Age: 47 Year
  Sex: Female

DRUGS (1)
  1. HUMIRA [Suspect]
     Active Substance: ADALIMUMAB
     Indication: COLITIS ULCERATIVE
     Route: 058
     Dates: start: 20151113

REACTIONS (10)
  - Decreased appetite [Unknown]
  - Scab [Unknown]
  - Burning sensation [Recovering/Resolving]
  - Constipation [Unknown]
  - Oral herpes [Unknown]
  - Anxiety [Unknown]
  - Drug dose omission [Unknown]
  - Insomnia [Unknown]
  - Depressed mood [Unknown]
  - Diarrhoea [Unknown]

NARRATIVE: CASE EVENT DATE: 2015
